FAERS Safety Report 25699250 (Version 1)
Quarter: 2025Q3

REPORT INFORMATION
  Report Type: Spontaneous
  Country: GB (occurrence: GB)
  Receive Date: 20250819
  Receipt Date: 20250819
  Transmission Date: 20251021
  Serious: Yes (Other)
  Sender: ALCON
  Company Number: GB-002147023-NVSC2025GB125402

PATIENT
  Sex: Female

DRUGS (1)
  1. SIMBRINZA [Suspect]
     Active Substance: BRIMONIDINE TARTRATE\BRINZOLAMIDE
     Indication: Product used for unknown indication
     Route: 047

REACTIONS (5)
  - Cataract [Unknown]
  - Glaucoma [Unknown]
  - Somnolence [Unknown]
  - Rash [Unknown]
  - Ocular hyperaemia [Unknown]
